FAERS Safety Report 18928062 (Version 1)
Quarter: 2021Q1

REPORT INFORMATION
  Report Type: Spontaneous
  Country: PT (occurrence: PT)
  Receive Date: 20210223
  Receipt Date: 20210223
  Transmission Date: 20210420
  Serious: Yes (Other)
  Sender: FDA-Public Use
  Company Number: PT-GLAXOSMITHKLINE-PT2021043041

PATIENT
  Age: 42 Year

DRUGS (2)
  1. DEFLAZACORT [Concomitant]
     Active Substance: DEFLAZACORT
     Indication: SYMPTOMATIC TREATMENT
     Dosage: 30 MG
     Route: 048
  2. RELVAR ELLIPTA [Suspect]
     Active Substance: FLUTICASONE FUROATE\VILANTEROL TRIFENATATE
     Indication: SYMPTOMATIC TREATMENT
     Dosage: 1 DF, QD
     Route: 055
     Dates: start: 20210128, end: 20210130

REACTIONS (4)
  - Throat irritation [Recovered/Resolved]
  - Dyspnoea [Recovered/Resolved]
  - Cough [Recovered/Resolved]
  - Chest pain [Recovered/Resolved]

NARRATIVE: CASE EVENT DATE: 20210128
